FAERS Safety Report 16454691 (Version 1)
Quarter: 2019Q2

REPORT INFORMATION
  Report Type: Spontaneous
  Country: US (occurrence: US)
  Receive Date: 20190619
  Receipt Date: 20190619
  Transmission Date: 20190711
  Serious: No
  Sender: FDA-Public Use
  Company Number: US-ROCHE-2145035

PATIENT
  Sex: Female

DRUGS (5)
  1. LEFLUNOMIDE. [Concomitant]
     Active Substance: LEFLUNOMIDE
  2. IBUPROFEN. [Concomitant]
     Active Substance: IBUPROFEN
  3. CLARITIN [Concomitant]
     Active Substance: LORATADINE
  4. LUPRON [Concomitant]
     Active Substance: LEUPROLIDE ACETATE
  5. ACTEMRA [Suspect]
     Active Substance: TOCILIZUMAB
     Indication: RHEUMATOID ARTHRITIS
     Dosage: ONGOING
     Route: 058
     Dates: start: 20180323

REACTIONS (1)
  - Fibromyalgia [Unknown]
